FAERS Safety Report 20318709 (Version 1)
Quarter: 2022Q1

REPORT INFORMATION
  Report Type: Spontaneous
  Country: US (occurrence: None)
  Receive Date: 20220110
  Receipt Date: 20220110
  Transmission Date: 20220423
  Serious: Yes (Other)
  Sender: FDA-Public Use
  Company Number: None

PATIENT
  Age: 53 Year
  Sex: Female

DRUGS (1)
  1. XIFAXAN [Suspect]
     Active Substance: RIFAXIMIN
     Indication: Hepatic encephalopathy
     Dosage: FREQUENCY : DAILY;?
     Route: 048
     Dates: start: 202110

REACTIONS (2)
  - Liver function test abnormal [None]
  - Renal function test abnormal [None]

NARRATIVE: CASE EVENT DATE: 20220101
